FAERS Safety Report 23717612 (Version 1)
Quarter: 2024Q2

REPORT INFORMATION
  Report Type: Spontaneous
  Country: FR (occurrence: FR)
  Receive Date: 20240408
  Receipt Date: 20240408
  Transmission Date: 20240716
  Serious: Yes (Life-Threatening, Other)
  Sender: FDA-Public Use
  Company Number: FR-AFSSAPS-RN2024000338

PATIENT
  Age: 9 Year
  Sex: Female

DRUGS (2)
  1. MEROPENEM [Suspect]
     Active Substance: MEROPENEM
     Indication: Meningitis bacterial
     Dosage: 40 MG/KG OR 1G (MENINGEAL DOSE) AT 3 A.M.
     Route: 042
     Dates: start: 20240308, end: 20240308
  2. VANCOMYCIN [Suspect]
     Active Substance: VANCOMYCIN
     Indication: Meningitis bacterial
     Dosage: 20 MG/KG OVER 1 HOUR OR 520 MG OVER 1 HOUR TO 2 HOURS 15 MINUTES THEN SAP 40 MG/KG/DAY
     Route: 042
     Dates: start: 20240308, end: 20240308

REACTIONS (1)
  - Anaphylactic reaction [Recovering/Resolving]

NARRATIVE: CASE EVENT DATE: 20240308
